FAERS Safety Report 4816405-0 (Version None)
Quarter: 2005Q4

REPORT INFORMATION
  Report Type: 
  Country: None (occurrence: None)
  Receive Date: 20051028
  Receipt Date: 20051013
  Transmission Date: 20060501
  Serious: Yes (Hospitalization)
  Sender: FDA-Public Use
  Company Number: 2005142096

PATIENT
  Age: 65 Year
  Sex: Male
  Weight: 85 kg

DRUGS (5)
  1. ATORVASTATIN CALCIUM [Suspect]
     Indication: CORONARY ARTERY DISEASE
     Dosage: 10 MG (10 MG, 1 IN 1 D), ORAL
     Route: 048
     Dates: start: 20050718, end: 20051005
  2. ATORVASTATIN CALCIUM [Suspect]
     Indication: CORONARY ARTERY DISEASE
     Dosage: 10 MG (10 MG, 1 IN 1 D), ORAL
     Route: 048
     Dates: start: 20050718, end: 20051005
  3. ACETYLSALICYLIC ACID SRT [Concomitant]
  4. BISOPROLOL (BISOPROLOL) [Concomitant]
  5. OMEPRAZOLE [Concomitant]

REACTIONS (10)
  - ACUTE CORONARY SYNDROME [None]
  - ANGINA UNSTABLE [None]
  - CARDIAC MURMUR [None]
  - CARDIAC PROCEDURE COMPLICATION [None]
  - CARDIOMEGALY [None]
  - FATIGUE [None]
  - HYPERTENSIVE EMERGENCY [None]
  - JUGULAR VEIN DISTENSION [None]
  - LABORATORY TEST ABNORMAL [None]
  - MALAISE [None]
